FAERS Safety Report 18261680 (Version 1)
Quarter: 2020Q3

REPORT INFORMATION
  Report Type: Spontaneous
  Country: US (occurrence: US)
  Receive Date: 20200911
  Receipt Date: 20200911
  Transmission Date: 20201103
  Serious: Yes (Death, Hospitalization)
  Sender: FDA-Public Use
  Company Number: None

PATIENT
  Age: 62 Year
  Sex: Female
  Weight: 106 kg

DRUGS (20)
  1. DULOXETINE 60MG [Concomitant]
     Active Substance: DULOXETINE
  2. CAPECITABINE. [Suspect]
     Active Substance: CAPECITABINE
     Indication: PANCREATIC CARCINOMA
     Route: 048
     Dates: start: 20200617, end: 20200709
  3. LEVOTHYROXINE 75MCG [Concomitant]
     Active Substance: LEVOTHYROXINE
  4. PRIMIDONE 250MG [Concomitant]
     Active Substance: PRIMIDONE
  5. ONDANSETRON 4MG [Concomitant]
     Active Substance: ONDANSETRON
  6. CLONAZEPAM 0.5MG [Concomitant]
     Active Substance: CLONAZEPAM
  7. COLACE [Concomitant]
     Active Substance: DOCUSATE SODIUM
  8. MORPHINE 30MG [Concomitant]
  9. PREDNISONE 10MG [Concomitant]
     Active Substance: PREDNISONE
  10. MONTELUKAST [Concomitant]
     Active Substance: MONTELUKAST SODIUM
  11. BREO ELIPTA 200?25MCG [Concomitant]
  12. SPIRIVA HANDIHALER 18MG [Concomitant]
  13. OXYCODONE 5MG [Concomitant]
     Active Substance: OXYCODONE
  14. METOCLOPRAMIDE 10MG [Concomitant]
     Active Substance: METOCLOPRAMIDE
  15. LAMOTRIGINE 200MG [Concomitant]
     Active Substance: LAMOTRIGINE
  16. FIBER LAXATIVE 625MG [Concomitant]
  17. MORPHINE 15MG [Concomitant]
     Active Substance: MORPHINE
  18. ALBUTEROL. [Concomitant]
     Active Substance: ALBUTEROL
  19. IPRATROPIUM [Concomitant]
     Active Substance: IPRATROPIUM
  20. SENNA LAX 8.6MG [Concomitant]

REACTIONS (3)
  - Chronic obstructive pulmonary disease [None]
  - Respiratory failure [None]
  - COVID-19 [None]

NARRATIVE: CASE EVENT DATE: 20200825
